FAERS Safety Report 19224472 (Version 2)
Quarter: 2021Q3

REPORT INFORMATION
  Report Type: Spontaneous
  Country: US (occurrence: US)
  Receive Date: 20210506
  Receipt Date: 20210802
  Transmission Date: 20211014
  Serious: Yes (Hospitalization)
  Sender: FDA-Public Use
  Company Number: US-TEVA-2021-US-1907251

PATIENT
  Age: 52 Year
  Sex: Male

DRUGS (1)
  1. METFORMIN [Suspect]
     Active Substance: METFORMIN HYDROCHLORIDE
     Indication: INTENTIONAL OVERDOSE
     Dosage: THE PATIENT SURREPTITIOUSLY INGESTED 60 PILLS OF METFORMIN 1000 MG WHILE ALONE IN HIS HOSPITAL ROOM
     Route: 048

REACTIONS (8)
  - Hyperlactacidaemia [Recovered/Resolved]
  - Depressed level of consciousness [Recovered/Resolved]
  - Intentional overdose [Unknown]
  - Hypoglycaemia [Recovered/Resolved]
  - Hypotension [Recovered/Resolved]
  - Tachypnoea [Recovered/Resolved]
  - Metabolic acidosis [Recovered/Resolved]
  - Mental status changes [Recovered/Resolved]
